FAERS Safety Report 4355728-9 (Version None)
Quarter: 2004Q2

REPORT INFORMATION
  Report Type: 
  Country: None (occurrence: None)
  Receive Date: 20040510
  Receipt Date: 20040510
  Transmission Date: 20050107
  Serious: No
  Sender: FDA-Public Use
  Company Number: None

PATIENT
  Sex: Male
  Weight: 65.7 kg

DRUGS (2)
  1. CAPECITABINE [Suspect]
     Indication: RECTAL CANCER
     Dosage: 825 MG/M2 PO BID
     Route: 048
     Dates: start: 20040315
  2. IRESSA [Suspect]
     Indication: RECTAL CANCER
     Dosage: 250 MG PO QD
     Route: 048
     Dates: start: 20040225

REACTIONS (6)
  - ANTINUCLEAR ANTIBODY POSITIVE [None]
  - BIOPSY LIVER ABNORMAL [None]
  - HEPATIC STEATOSIS [None]
  - HEPATOCELLULAR DAMAGE [None]
  - INFLAMMATION [None]
  - TRANSAMINASES INCREASED [None]
